FAERS Safety Report 14202560 (Version 1)
Quarter: 2017Q4

REPORT INFORMATION
  Report Type: Spontaneous
  Country: CN (occurrence: CN)
  Receive Date: 20171117
  Receipt Date: 20171117
  Transmission Date: 20180321
  Serious: Yes (Other)
  Sender: FDA-Public Use
  Company Number: CN-SUN PHARMACEUTICAL INDUSTRIES LTD-2017R1-154848

PATIENT
  Age: 41 Year
  Sex: Male

DRUGS (2)
  1. TEMOZOLOMIDE. [Suspect]
     Active Substance: TEMOZOLOMIDE
     Indication: MALIGNANT MELANOMA
     Dosage: 200 MG DAY1-5, EVERY 28 DAY
     Route: 065
  2. APATINIB [Suspect]
     Active Substance: APATINIB
     Indication: MALIGNANT MELANOMA
     Dosage: 500 MG, QD
     Route: 065

REACTIONS (3)
  - Palmar-plantar erythrodysaesthesia syndrome [Unknown]
  - Therapeutic response decreased [Unknown]
  - Aphthous ulcer [Unknown]
